FAERS Safety Report 6063076-4 (Version None)
Quarter: 2009Q1

REPORT INFORMATION
  Report Type: 
  Country: None (occurrence: None)
  Receive Date: 20090203
  Receipt Date: 20090121
  Transmission Date: 20090719
  Serious: Yes (Other)
  Sender: FDA-Public Use
  Company Number: PHHY2009BR02516

PATIENT
  Age: 52 Year
  Sex: Female
  Weight: 72 kg

DRUGS (3)
  1. DIOVAN [Suspect]
     Indication: HYPERTENSION
     Dosage: 1 TABLEY/DAY
     Route: 048
     Dates: start: 20080101
  2. ISOFLAVONE [Concomitant]
  3. SYNTHROID [Concomitant]
     Indication: HYPOTHYROIDISM
     Dosage: 1 TA

REACTIONS (4)
  - DYSPNOEA [None]
  - GENERALISED OEDEMA [None]
  - OEDEMA PERIPHERAL [None]
  - SPEECH DISORDER [None]
